FAERS Safety Report 10471996 (Version 1)
Quarter: 2014Q3

REPORT INFORMATION
  Report Type: Report from Study
  Country: US (occurrence: US)
  Receive Date: 20140924
  Receipt Date: 20140924
  Transmission Date: 20150326
  Serious: Yes (Hospitalization)
  Sender: FDA-Public Use
  Company Number: US-BIOGENIDEC-2014BI095038

PATIENT
  Age: 68 Year
  Sex: Female

DRUGS (16)
  1. ACETAMINOPHEN. [Concomitant]
     Active Substance: ACETAMINOPHEN
  2. TECFIDERA [Suspect]
     Active Substance: DIMETHYL FUMARATE
     Indication: MULTIPLE SCLEROSIS
     Route: 048
     Dates: start: 20140725
  3. ONDANSETRON [Concomitant]
     Active Substance: ONDANSETRON
  4. AMPYRA [Concomitant]
     Active Substance: DALFAMPRIDINE
     Indication: MULTIPLE SCLEROSIS
     Route: 048
     Dates: start: 20120816
  5. LORAZEPAM. [Concomitant]
     Active Substance: LORAZEPAM
  6. ALENDRONATE [Concomitant]
     Active Substance: ALENDRONATE SODIUM
  7. AMOXICILLIN. [Concomitant]
     Active Substance: AMOXICILLIN
  8. FOLIC ACID. [Concomitant]
     Active Substance: FOLIC ACID
     Route: 048
  9. ASCORBIC ACID. [Concomitant]
     Active Substance: ASCORBIC ACID
  10. VITAMIN D [Concomitant]
     Active Substance: CHOLECALCIFEROL
  11. METOPROLOL [Concomitant]
     Active Substance: METOPROLOL
  12. HYDROCODONE BITARTRATE AND ACETAMINOPHEN [Concomitant]
     Active Substance: ACETAMINOPHEN\HYDROCODONE BITARTRATE
  13. THERA-M [Concomitant]
  14. LOSARTAN [Concomitant]
     Active Substance: LOSARTAN
  15. VERAPAMIL [Concomitant]
     Active Substance: VERAPAMIL HYDROCHLORIDE
  16. THIAMINE HYDROCHLORIDE. [Concomitant]
     Active Substance: THIAMINE HYDROCHLORIDE

REACTIONS (9)
  - Fall [Recovered/Resolved]
  - Alcohol withdrawal syndrome [Unknown]
  - Head injury [Unknown]
  - Brachial plexus injury [Unknown]
  - Pain in extremity [Unknown]
  - Clavicle fracture [Unknown]
  - Neck pain [Not Recovered/Not Resolved]
  - Gait disturbance [Unknown]
  - Musculoskeletal disorder [Unknown]

NARRATIVE: CASE EVENT DATE: 201407
